FAERS Safety Report 5238719-5 (Version None)
Quarter: 2007Q1

REPORT INFORMATION
  Report Type: 
  Country: None (occurrence: None)
  Receive Date: 20070215
  Receipt Date: 20070206
  Transmission Date: 20070707
  Serious: Yes (Other)
  Sender: FDA-Public Use
  Company Number: TR-BOEHRINGER INGELHEIM GMBH, GERMANY-2007-DE-00777GD

PATIENT
  Sex: Female

DRUGS (3)
  1. ASPIRIN [Suspect]
     Indication: ALLERGY TEST
     Dosage: STARTING DOSE, 10 MG, FOLLOWED BY 17, 44, 117, AND 312 MG
     Route: 048
  2. MOBIC [Suspect]
     Indication: ALLERGY TEST
     Route: 048
  3. METAMIZOLE [Suspect]

REACTIONS (8)
  - ANAPHYLACTOID REACTION [None]
  - ASTHMA [None]
  - BRONCHIAL OBSTRUCTION [None]
  - BRONCHOSPASM [None]
  - DRUG HYPERSENSITIVITY [None]
  - GENERALISED ERYTHEMA [None]
  - NASAL CONGESTION [None]
  - RHINORRHOEA [None]
